FAERS Safety Report 8767354 (Version 1)
Quarter: 2012Q4

REPORT INFORMATION
  Report Type: 
  Country: US (occurrence: US)
  Receive Date: 20120904
  Receipt Date: 20120904
  Transmission Date: 20130627
  Serious: Yes (Disabling, Other)
  Sender: FDA-Public Use
  Company Number: US-SANOFI-AVENTIS-2012SA060717

PATIENT
  Age: 64 Year
  Sex: Male

DRUGS (1)
  1. LANTUS [Suspect]
     Dosage: Dose:15 unit(s)
     Route: 058
     Dates: start: 2002

REACTIONS (4)
  - Cerebrovascular accident [Unknown]
  - Retinal vascular thrombosis [Unknown]
  - Blindness [Unknown]
  - Blood glucose decreased [Unknown]
